FAERS Safety Report 4799719-2 (Version None)
Quarter: 2005Q4

REPORT INFORMATION
  Report Type: 
  Country: None (occurrence: None)
  Receive Date: 20051006
  Receipt Date: 20051006
  Transmission Date: 20060501
  Serious: No
  Sender: FDA-Public Use
  Company Number: None

PATIENT
  Age: 25 Year
  Sex: Male
  Weight: 11.3399 kg

DRUGS (8)
  1. LORAZEPAM [Suspect]
     Indication: ANXIETY
     Dosage: 2MG , X1, IV
     Route: 042
     Dates: start: 20040606
  2. MORPHINE [Suspect]
     Indication: PAIN
     Dates: start: 20040606
  3. BISACODYL [Concomitant]
  4. DOCUSATE [Concomitant]
  5. GABAPENTIN [Concomitant]
  6. KETOROLAC TROMETHAMINE [Concomitant]
  7. SUCRALFATE [Concomitant]
  8. LORAZEPAM [Concomitant]

REACTIONS (3)
  - ANXIETY [None]
  - LOSS OF CONSCIOUSNESS [None]
  - OXYGEN SATURATION DECREASED [None]
